FAERS Safety Report 8933741 (Version 2)
Quarter: 2013Q1

REPORT INFORMATION
  Report Type: Spontaneous
  Country: BE (occurrence: BE)
  Receive Date: 20121129
  Receipt Date: 20130306
  Transmission Date: 20140127
  Serious: Yes (Other)
  Sender: FDA-Public Use
  Company Number: BE-ROCHE-1160005

PATIENT
  Sex: Female

DRUGS (2)
  1. XOLAIR [Suspect]
     Indication: ASTHMA
     Dosage: 75/0.5MG/ML
     Route: 065
  2. CORTICOSTEROIDS (UNK INGREDIENTS) [Concomitant]

REACTIONS (2)
  - Labour complication [Unknown]
  - Exposure during pregnancy [Unknown]
